FAERS Safety Report 20451699 (Version 3)
Quarter: 2022Q1

REPORT INFORMATION
  Report Type: Report from Study
  Country: IT (occurrence: IT)
  Receive Date: 20220209
  Receipt Date: 20220215
  Transmission Date: 20220424
  Serious: Yes (Other)
  Sender: FDA-Public Use
  Company Number: IT-ACRAF SpA-2022-026719

PATIENT

DRUGS (2)
  1. LATUDA [Suspect]
     Active Substance: LURASIDONE HYDROCHLORIDE
     Indication: Depression
     Dosage: 37 MG
     Route: 048
     Dates: start: 20210513
  2. LATUDA [Suspect]
     Active Substance: LURASIDONE HYDROCHLORIDE
     Dosage: 74 MG
     Route: 048
     Dates: start: 20210701, end: 20210910

REACTIONS (5)
  - Aggression [Unknown]
  - Drug ineffective [Unknown]
  - Hostility [Unknown]
  - Extrapyramidal disorder [Unknown]
  - Off label use [Recovered/Resolved]
